FAERS Safety Report 12422692 (Version 1)
Quarter: 2016Q2

REPORT INFORMATION
  Report Type: Spontaneous
  Country: US (occurrence: US)
  Receive Date: 20160601
  Receipt Date: 20160601
  Transmission Date: 20160815
  Serious: No
  Sender: FDA-Public Use
  Company Number: US-BIOGEN-2016BI00235657

PATIENT
  Sex: Female

DRUGS (1)
  1. PLEGRIDY [Suspect]
     Active Substance: PEGINTERFERON BETA-1A
     Indication: MULTIPLE SCLEROSIS
     Route: 065
     Dates: start: 20141202, end: 20160502

REACTIONS (5)
  - Influenza like illness [Not Recovered/Not Resolved]
  - Rash [Not Recovered/Not Resolved]
  - Dizziness [Not Recovered/Not Resolved]
  - Injection site reaction [Not Recovered/Not Resolved]
  - Injection site rash [Not Recovered/Not Resolved]
